FAERS Safety Report 20503472 (Version 2)
Quarter: 2022Q2

REPORT INFORMATION
  Report Type: Report from Study
  Country: CA (occurrence: CA)
  Receive Date: 20220222
  Receipt Date: 20220520
  Transmission Date: 20220721
  Serious: Yes (Other)
  Sender: FDA-Public Use
  Company Number: CA-OTSUKA-2021_036119

PATIENT
  Sex: Female

DRUGS (2)
  1. ARIPIPRAZOLE [Suspect]
     Active Substance: ARIPIPRAZOLE
     Indication: Product used for unknown indication
     Dosage: 300 MG, Q 30 DAYS
     Route: 030
  2. ARIPIPRAZOLE [Suspect]
     Active Substance: ARIPIPRAZOLE
     Dosage: 400 MG, Q 30 DAYS
     Route: 030

REACTIONS (9)
  - Hallucination, auditory [Not Recovered/Not Resolved]
  - Hallucination [Not Recovered/Not Resolved]
  - Peripheral swelling [Unknown]
  - Swelling of eyelid [Not Recovered/Not Resolved]
  - Paranoia [Unknown]
  - Abdominal pain [Unknown]
  - Pain in extremity [Not Recovered/Not Resolved]
  - Abdominal discomfort [Unknown]
  - Underdose [Unknown]
